FAERS Safety Report 12897590 (Version 3)
Quarter: 2017Q4

REPORT INFORMATION
  Report Type: Spontaneous
  Country: AU (occurrence: AU)
  Receive Date: 20161031
  Receipt Date: 20171003
  Transmission Date: 20180320
  Serious: Yes (Death, Other)
  Sender: FDA-Public Use
  Company Number: AU-PFIZER INC-2016501609

PATIENT
  Age: 67 Year
  Sex: Male

DRUGS (1)
  1. METHOTREXATE. [Suspect]
     Active Substance: METHOTREXATE
     Indication: RHEUMATOID ARTHRITIS
     Dosage: 20 MG, WEEKLY (FOR OVER 20 YEARS)
     Route: 048

REACTIONS (4)
  - Epstein-Barr virus infection [Fatal]
  - Vasculitis necrotising [Unknown]
  - Fungal infection [Unknown]
  - Bone marrow toxicity [Unknown]
